FAERS Safety Report 7277787-6 (Version None)
Quarter: 2011Q1

REPORT INFORMATION
  Report Type: 
  Country: None (occurrence: None)
  Receive Date: 20110207
  Receipt Date: 20101220
  Transmission Date: 20110831
  Serious: No
  Sender: FDA-Public Use
  Company Number: A0900624A

PATIENT
  Sex: Female

DRUGS (1)
  1. OLUX E [Suspect]

REACTIONS (1)
  - BURNING SENSATION [None]
